FAERS Safety Report 4987681-9 (Version None)
Quarter: 2006Q2

REPORT INFORMATION
  Report Type: 
  Country: None (occurrence: None)
  Receive Date: 20060501
  Receipt Date: 20060210
  Transmission Date: 20061013
  Serious: Yes (Death, Hospitalization)
  Sender: FDA-Public Use
  Company Number: FI-NOVOPROD-250785

PATIENT
  Age: 63 Year
  Sex: Male
  Weight: 80 kg

DRUGS (26)
  1. PROPACETAMOL HYDROCHLORIDE [Concomitant]
     Route: 042
     Dates: start: 20060209
  2. NOVOSEVEN [Suspect]
     Indication: CEREBRAL HAEMORRHAGE
     Dosage: 1
     Route: 042
     Dates: start: 20060209
  3. METOCLOPRAMIDE HYDROCHLORIDE [Concomitant]
     Route: 042
     Dates: start: 20060209
  4. OMEPRAZOLE [Concomitant]
     Route: 042
     Dates: start: 20060209
  5. PARACETAMOL [Concomitant]
     Indication: PROPHYLAXIS
     Dates: start: 20060209, end: 20060213
  6. PARACETAMOL [Concomitant]
     Dates: start: 20060217, end: 20060217
  7. PARACETAMOL [Concomitant]
     Dates: start: 20060224, end: 20060315
  8. METOCLOPRAMIDE [Concomitant]
     Indication: NAUSEA
     Dates: start: 20060209, end: 20060209
  9. ESOMEPRAZOLE [Concomitant]
     Indication: PROPHYLAXIS
     Dates: start: 20060209, end: 20060209
  10. IPRATROPIUM BROMIDE W/SALBUTAMOL [Concomitant]
     Indication: RESPIRATORY DISTRESS
     Dates: start: 20060210, end: 20060210
  11. METHYLPREDNISOLON NATRIUM SUCCINAAT MAYNE [Concomitant]
     Indication: RESPIRATORY DISTRESS
     Dates: start: 20060210, end: 20060216
  12. BUDESONIDE [Concomitant]
     Indication: RESPIRATORY DISTRESS
     Dates: start: 20060210, end: 20060210
  13. PANTOPRAZOLE SODIUM [Concomitant]
     Indication: PROPHYLAXIS
     Dates: start: 20060210
  14. GLYCERYLNITRAT [Concomitant]
     Indication: RESPIRATORY DISTRESS
     Dates: start: 20060210, end: 20060210
  15. FUROSEMIDE [Concomitant]
     Indication: RESPIRATORY DISTRESS
     Dates: start: 20060209, end: 20060210
  16. MORFINE HCL A [Concomitant]
     Indication: RESPIRATORY DISTRESS
     Dates: start: 20060210, end: 20060212
  17. LAKTULOS [Concomitant]
     Indication: CONSTIPATION
     Dates: start: 20060215
  18. PREDNISONE TAB [Concomitant]
     Indication: RESPIRATORY DISTRESS
     Dates: start: 20060217
  19. HALOPERIL [Concomitant]
     Indication: AGGRESSION
     Dates: start: 20060217, end: 20060217
  20. AMLODIPIN                          /00972401/ [Concomitant]
     Indication: HYPERTENSION
     Dates: start: 20060211
  21. CALCIUM CARBONATE [Concomitant]
     Indication: PROPHYLAXIS
     Dates: start: 20060215
  22. DALTEPARIN SODIUM [Concomitant]
     Indication: PROPHYLAXIS
     Dates: start: 20060222
  23. DIAZEPAM [Concomitant]
     Indication: AGGRESSION
     Dates: start: 20060219, end: 20060219
  24. SODIUM PICOSULFATE [Concomitant]
     Indication: CONSTIPATION
     Dates: start: 20060220, end: 20060221
  25. LABETALOL HCL [Concomitant]
     Indication: HYPERTENSION
     Dates: start: 20060209, end: 20060209
  26. ESCITALOPRAM OXALATE [Concomitant]
     Indication: PROPHYLAXIS

REACTIONS (8)
  - ANAEMIA [None]
  - ANURIA [None]
  - DIALYSIS [None]
  - DIARRHOEA [None]
  - RENAL ARTERY THROMBOSIS [None]
  - RENAL FAILURE [None]
  - SMALL INTESTINAL HAEMORRHAGE [None]
  - STAPHYLOCOCCAL SEPSIS [None]
